FAERS Safety Report 4738241-6 (Version None)
Quarter: 2005Q3

REPORT INFORMATION
  Report Type: 
  Country: None (occurrence: None)
  Receive Date: 20050805
  Receipt Date: 20050727
  Transmission Date: 20060218
  Serious: Yes (Other)
  Sender: FDA-Public Use
  Company Number: 2005058049

PATIENT
  Age: 65 Year
  Sex: Male

DRUGS (2)
  1. BEXTRA [Suspect]
     Dosage: 20 MG (20 MG, 1 IN D), ORAL
     Route: 048
     Dates: start: 20041125, end: 20041214
  2. MULTIVITAMIN [Concomitant]

REACTIONS (6)
  - HEART RATE IRREGULAR [None]
  - HERPES ZOSTER [None]
  - OEDEMA PERIPHERAL [None]
  - PALPITATIONS [None]
  - RASH [None]
  - SKIN REACTION [None]
